FAERS Safety Report 8374108-2 (Version None)
Quarter: 2012Q2

REPORT INFORMATION
  Report Type: 
  Country: None (occurrence: None)
  Receive Date: 20120521
  Receipt Date: 20120511
  Transmission Date: 20120825
  Serious: Yes (Other)
  Sender: FDA-Public Use
  Company Number: JP-VERTEX PHARMACEUTICALS INC.-AE-2012-004052

PATIENT
  Age: 58 Year
  Sex: Male

DRUGS (5)
  1. PEGINTERFERON ALFA-2A [Concomitant]
     Route: 051
     Dates: start: 20111212
  2. REBETOL [Concomitant]
     Indication: HEPATITIS C
     Route: 048
     Dates: start: 20111212, end: 20120213
  3. TELAVIC (TELAPREVIR) [Suspect]
     Indication: HEPATITIS C
     Route: 048
     Dates: start: 20111212, end: 20120130
  4. TELAVIC (TELAPREVIR) [Suspect]
     Route: 048
     Dates: start: 20120131, end: 20120206
  5. REBETOL [Concomitant]
     Route: 048
     Dates: start: 20120214

REACTIONS (2)
  - ERYTHEMA MULTIFORME [None]
  - HAEMOGLOBIN DECREASED [None]
